FAERS Safety Report 4535429-4 (Version None)
Quarter: 2004Q4

REPORT INFORMATION
  Report Type: 
  Country: None (occurrence: None)
  Receive Date: 20041222
  Receipt Date: 20041215
  Transmission Date: 20050328
  Serious: Yes (Hospitalization)
  Sender: FDA-Public Use
  Company Number: US-MERCK-0412USA02059

PATIENT
  Age: 71 Year
  Sex: Female

DRUGS (3)
  1. ZOCOR [Suspect]
     Route: 048
  2. DILTIAZEM HYDROCHLORIDE [Concomitant]
     Route: 065
  3. GEMFIBROZIL [Concomitant]
     Route: 065

REACTIONS (4)
  - CHROMATURIA [None]
  - CONFUSIONAL STATE [None]
  - HEPATIC ENZYME INCREASED [None]
  - MYALGIA [None]
